FAERS Safety Report 14452669 (Version 2)
Quarter: 2018Q1

REPORT INFORMATION
  Report Type: Spontaneous
  Country: US (occurrence: US)
  Receive Date: 20180129
  Receipt Date: 20180130
  Transmission Date: 20180509
  Serious: Yes (Other)
  Sender: FDA-Public Use
  Company Number: US-JNJFOC-20180127733

PATIENT
  Age: 86 Year
  Sex: Male
  Weight: 70.31 kg

DRUGS (1)
  1. STELARA [Suspect]
     Active Substance: USTEKINUMAB
     Indication: PSORIASIS
     Route: 058
     Dates: start: 201607, end: 20170210

REACTIONS (5)
  - Pneumonia [Unknown]
  - Pain in jaw [Unknown]
  - Psoriasis [Unknown]
  - Drug ineffective [Unknown]
  - Lymph node pain [Unknown]

NARRATIVE: CASE EVENT DATE: 201701
